FAERS Safety Report 20605961 (Version 1)
Quarter: 2022Q1

REPORT INFORMATION
  Report Type: Spontaneous
  Country: US (occurrence: US)
  Receive Date: 20220317
  Receipt Date: 20220317
  Transmission Date: 20220423
  Serious: Yes (Hospitalization)
  Sender: FDA-Public Use
  Company Number: US-Vifor (International) Inc.-VIT-2022-01696

PATIENT
  Age: 44 Year
  Sex: Female
  Weight: 83.2 kg

DRUGS (1)
  1. MIRCERA [Suspect]
     Active Substance: METHOXY POLYETHYLENE GLYCOL-EPOETIN BETA
     Indication: Nephrogenic anaemia
     Route: 040
     Dates: start: 20220207, end: 20220207

REACTIONS (3)
  - Drug hypersensitivity [Unknown]
  - Back pain [Not Recovered/Not Resolved]
  - Blood pressure systolic decreased [Recovering/Resolving]

NARRATIVE: CASE EVENT DATE: 20220207
